FAERS Safety Report 9149421 (Version 1)
Quarter: 2013Q1

REPORT INFORMATION
  Report Type: Report from Study
  Country: US (occurrence: US)
  Receive Date: 20130308
  Receipt Date: 20130308
  Transmission Date: 20140127
  Serious: Yes (Other)
  Sender: FDA-Public Use
  Company Number: US-JNJFOC-20130216929

PATIENT
  Age: 75 None
  Sex: Female
  Weight: 74.84 kg

DRUGS (5)
  1. REMICADE [Suspect]
     Indication: RHEUMATOID ARTHRITIS
     Dosage: ABOUT 2 YEARS AGO
     Route: 042
     Dates: start: 2011
  2. PREDNISONE [Concomitant]
     Indication: PAIN
     Route: 065
     Dates: start: 2003
  3. METHOTREXATE [Concomitant]
     Indication: RHEUMATOID ARTHRITIS
     Route: 065
     Dates: end: 201211
  4. HYDROCODONE [Concomitant]
     Indication: PAIN
     Route: 048
     Dates: start: 2003
  5. FOLIC ACID [Concomitant]
     Route: 065

REACTIONS (6)
  - Osteoporosis [Not Recovered/Not Resolved]
  - Arthralgia [Not Recovered/Not Resolved]
  - Amnesia [Not Recovered/Not Resolved]
  - Tooth abscess [Not Recovered/Not Resolved]
  - Pain in extremity [Not Recovered/Not Resolved]
  - Myalgia [Not Recovered/Not Resolved]
